FAERS Safety Report 21395898 (Version 1)
Quarter: 2022Q3

REPORT INFORMATION
  Report Type: Report from Study
  Country: US (occurrence: None)
  Receive Date: 20220930
  Receipt Date: 20220930
  Transmission Date: 20221027
  Serious: Yes (Death)
  Sender: FDA-Public Use
  Company Number: 2022A333700

PATIENT
  Age: 26963 Day
  Sex: Female

DRUGS (12)
  1. TAGRISSO [Suspect]
     Active Substance: OSIMERTINIB
     Indication: Non-small cell lung cancer
     Route: 048
     Dates: start: 20220307
  2. CLARITIN [Concomitant]
     Active Substance: LORATADINE
     Route: 065
  3. COLACE [Concomitant]
     Active Substance: DOCUSATE SODIUM
     Route: 065
  4. DECADRON [Concomitant]
     Active Substance: DEXAMETHASONE
     Route: 065
  5. FOLIC ACID [Concomitant]
     Active Substance: FOLIC ACID
     Route: 065
  6. GAS-X [Concomitant]
     Active Substance: DIMETHICONE
     Route: 065
  7. NORCO [Concomitant]
     Active Substance: ACETAMINOPHEN\HYDROCODONE BITARTRATE
  8. LUTEIN [Concomitant]
     Active Substance: LUTEIN
  9. CALCIUM [Concomitant]
     Active Substance: CALCIUM
     Route: 065
  10. PEPCID [Concomitant]
     Active Substance: FAMOTIDINE
     Route: 065
  11. SYNTHROID [Concomitant]
     Active Substance: LEVOTHYROXINE SODIUM
     Route: 065
  12. VITAMIN C [Concomitant]
     Active Substance: ASCORBIC ACID
     Route: 065

REACTIONS (1)
  - Death [Fatal]

NARRATIVE: CASE EVENT DATE: 20220824
